FAERS Safety Report 23946443 (Version 1)
Quarter: 2024Q2

REPORT INFORMATION
  Report Type: Spontaneous
  Country: US (occurrence: US)
  Receive Date: 20240606
  Receipt Date: 20240606
  Transmission Date: 20240716
  Serious: No
  Sender: FDA-Public Use
  Company Number: US-SA-SAC20240531000312

PATIENT
  Age: 3 Year
  Sex: Male
  Weight: 19.9 kg

DRUGS (4)
  1. DUPIXENT [Suspect]
     Active Substance: DUPILUMAB
     Indication: Dermatitis atopic
     Dosage: 300 MG Q4W
     Route: 058
     Dates: start: 20240109, end: 2024
  2. FLONASE ALLERGY RELIEF [Concomitant]
     Active Substance: FLUTICASONE PROPIONATE
  3. M M R II [Concomitant]
     Dosage: UNK
     Dates: start: 20240524
  4. ZYRTEC [Concomitant]
     Active Substance: CETIRIZINE HYDROCHLORIDE

REACTIONS (4)
  - Perioral dermatitis [Unknown]
  - Skin discolouration [Unknown]
  - Ocular hyperaemia [Unknown]
  - Rash [Unknown]

NARRATIVE: CASE EVENT DATE: 20240101
